FAERS Safety Report 8390316-9 (Version None)
Quarter: 2012Q2

REPORT INFORMATION
  Report Type: 
  Country: None (occurrence: None)
  Receive Date: 20120529
  Receipt Date: 20120522
  Transmission Date: 20120825
  Serious: Yes (Other)
  Sender: FDA-Public Use
  Company Number: VE-PFIZER INC-2012123901

PATIENT
  Sex: Female

DRUGS (2)
  1. LYRICA [Suspect]
     Dosage: 75 MG, UNK
  2. LIPITOR [Concomitant]
     Dosage: 20 MG, UNK

REACTIONS (1)
  - CARDIAC DISORDER [None]
